FAERS Safety Report 18523462 (Version 3)
Quarter: 2020Q4

REPORT INFORMATION
  Report Type: Spontaneous
  Country: PL (occurrence: PL)
  Receive Date: 20201119
  Receipt Date: 20201222
  Transmission Date: 20210114
  Serious: Yes (Life-Threatening, Hospitalization, Other)
  Sender: FDA-Public Use
  Company Number: PL-GALDERMA-PL2020049063

PATIENT
  Age: 26 Year
  Sex: Female

DRUGS (9)
  1. RABBIT ANTITHYMOCYTE [Concomitant]
     Indication: PROPHYLAXIS AGAINST GRAFT VERSUS HOST DISEASE
     Route: 065
  2. CYCLOSPORINE. [Concomitant]
     Active Substance: CYCLOSPORINE
     Indication: PROPHYLAXIS AGAINST GRAFT VERSUS HOST DISEASE
     Route: 065
  3. MYCOPHENOLATE MOFETIL. [Concomitant]
     Active Substance: MYCOPHENOLATE MOFETIL
     Indication: IMMUNOSUPPRESSANT DRUG THERAPY
     Route: 065
  4. MYCOPHENOLATE MOFETIL. [Concomitant]
     Active Substance: MYCOPHENOLATE MOFETIL
     Indication: ACUTE GRAFT VERSUS HOST DISEASE IN SKIN
  5. METHYLPREDNISOLONE. [Concomitant]
     Active Substance: METHYLPREDNISOLONE
     Indication: ACUTE GRAFT VERSUS HOST DISEASE IN SKIN
     Dosage: TITRATED AND CONVERTED TO ORAL FORM
     Route: 048
  6. METHOTREXATE. [Concomitant]
     Active Substance: METHOTREXATE
     Indication: PROPHYLAXIS AGAINST GRAFT VERSUS HOST DISEASE
     Route: 065
  7. GANCICLOVIR. [Concomitant]
     Active Substance: GANCICLOVIR
     Indication: CYTOMEGALOVIRUS INFECTION REACTIVATION
     Route: 042
  8. CLOBETASOL [Suspect]
     Active Substance: CLOBETASOL
     Indication: ACUTE GRAFT VERSUS HOST DISEASE IN SKIN
     Route: 061
  9. MYCOPHENOLATE MOFETIL. [Concomitant]
     Active Substance: MYCOPHENOLATE MOFETIL
     Indication: CHRONIC GRAFT VERSUS HOST DISEASE

REACTIONS (14)
  - Lichen sclerosus [Recovered/Resolved]
  - Enterococcal infection [Recovering/Resolving]
  - Alopecia scarring [Recovered/Resolved]
  - Pseudomonas infection [Recovered/Resolved]
  - Pneumonia [Recovered/Resolved]
  - Pterygium [Recovered/Resolved]
  - Intentional product use issue [Recovered/Resolved]
  - Chronic graft versus host disease in skin [Recovered/Resolved]
  - Acinetobacter infection [Recovering/Resolving]
  - Cardiac arrest [Recovered/Resolved]
  - Haemoptysis [Recovering/Resolving]
  - Pleural effusion [Recovered/Resolved]
  - Bronchiolitis obliterans syndrome [Recovered/Resolved]
  - Dry eye [Recovered/Resolved]
